FAERS Safety Report 4365506-2 (Version None)
Quarter: 2004Q2

REPORT INFORMATION
  Report Type: 
  Country: None (occurrence: None)
  Receive Date: 20040526
  Receipt Date: 20040520
  Transmission Date: 20050107
  Serious: Yes (Death)
  Sender: FDA-Public Use
  Company Number: US-JNJFOC-20040505340

PATIENT
  Age: 15 Year
  Sex: Male

DRUGS (4)
  1. RISPERDAL [Suspect]
     Indication: AUTISM
     Route: 049
  2. ATIVAN [Concomitant]
  3. PAXIL [Concomitant]
  4. TRAZODONE HCL [Concomitant]

REACTIONS (2)
  - CIRCULATORY COLLAPSE [None]
  - CONVULSION [None]
